FAERS Safety Report 5045202-9 (Version None)
Quarter: 2006Q3

REPORT INFORMATION
  Report Type: 
  Country: None (occurrence: None)
  Receive Date: 20060705
  Receipt Date: 20060621
  Transmission Date: 20061208
  Serious: Yes (Hospitalization)
  Sender: FDA-Public Use
  Company Number: CLOF-10254

PATIENT
  Age: 67 Year
  Sex: Male

DRUGS (39)
  1. CLOFARABINE [Suspect]
     Indication: ACUTE MYELOID LEUKAEMIA
     Dosage: 60 MG QD X 5 IV
     Route: 042
     Dates: start: 20060405, end: 20060409
  2. CYTARABINE [Suspect]
     Indication: ACUTE MYELOID LEUKAEMIA
     Dosage: 40 MG SC
     Route: 058
     Dates: start: 20060405, end: 20060418
  3. TYLENOL (CAPLET) [Concomitant]
  4. BENADRYL [Concomitant]
  5. POTASSIUM CHLORIDE [Concomitant]
  6. METOPROLOL TARTRATE [Concomitant]
  7. FUROSEMIDE [Concomitant]
  8. SILDENAFIL CITRATE [Concomitant]
  9. HYDRALAZINE HCL [Concomitant]
  10. ISOSORBIDE MONONITRATE [Concomitant]
  11. ONDANSETRON HCL [Concomitant]
  12. PROMETHAZINE [Concomitant]
  13. ESOMEPRAZOLE [Concomitant]
  14. MAGNESIUM [Concomitant]
  15. FOLIC ACID [Concomitant]
  16. M.V.I. [Concomitant]
  17. OXYCODONE HCL [Concomitant]
  18. CEFPFDOXIME PROXETIL [Concomitant]
  19. NESIRITIDE [Concomitant]
  20. PROPOXYPHENE HYDROCHLORIDE [Concomitant]
  21. TEMAZEPAM [Concomitant]
  22. DIPHENOXYLATE [Concomitant]
  23. DEXTROMETHORPHAN [Concomitant]
  24. SENNA [Concomitant]
  25. MEPERIDINE HCL [Concomitant]
  26. VALACYCLOVIR [Concomitant]
  27. SIMVASTATIN [Concomitant]
  28. VANCOMYCIN [Concomitant]
  29. PIPERACILLIN [Concomitant]
  30. ZOLPIDEM TARTRATE [Concomitant]
  31. MORPHINE SULFATE [Concomitant]
  32. ALBUMIN [Concomitant]
  33. NEUPOGEN [Concomitant]
  34. THIAMINE [Concomitant]
  35. ACTIVASE [Concomitant]
  36. LEVOFLOXACIN [Concomitant]
  37. HYDROCORTISONE [Concomitant]
  38. ALLOPURINOL [Concomitant]
  39. SEVELAMER [Concomitant]

REACTIONS (15)
  - ATRIAL FIBRILLATION [None]
  - CARDIAC FAILURE CONGESTIVE [None]
  - ENCEPHALOPATHY [None]
  - HEPATIC FUNCTION ABNORMAL [None]
  - HYPERBILIRUBINAEMIA [None]
  - MEMORY IMPAIRMENT [None]
  - MENTAL STATUS CHANGES [None]
  - MYOCARDIAL ISCHAEMIA [None]
  - PROTEIN URINE PRESENT [None]
  - PULMONARY HYPERTENSION [None]
  - RENAL FAILURE ACUTE [None]
  - RESTRICTIVE CARDIOMYOPATHY [None]
  - RIGHT VENTRICULAR SYSTOLIC PRESSURE INCREASED [None]
  - URINE SODIUM DECREASED [None]
  - WEIGHT INCREASED [None]
